FAERS Safety Report 4375336-3 (Version None)
Quarter: 2004Q2

REPORT INFORMATION
  Report Type: 
  Country: None (occurrence: None)
  Receive Date: 20040607
  Receipt Date: 20030828
  Transmission Date: 20050107
  Serious: Yes (Other)
  Sender: FDA-Public Use
  Company Number: 345574

PATIENT
  Age: 47 Year
  Sex: Female

DRUGS (2)
  1. ACCUTANE [Suspect]
     Dosage: ORAL
     Route: 048
     Dates: end: 20021104
  2. CELEXA [Concomitant]

REACTIONS (6)
  - ADVERSE EVENT [None]
  - DEPRESSED MOOD [None]
  - DEPRESSION [None]
  - DRY SKIN [None]
  - FEELING OF DESPAIR [None]
  - THIRST [None]
